FAERS Safety Report 8512421-6 (Version None)
Quarter: 2012Q3

REPORT INFORMATION
  Report Type: 
  Country: None (occurrence: None)
  Receive Date: 20120716
  Receipt Date: 20120712
  Transmission Date: 20120928
  Serious: Yes (Other)
  Sender: FDA-Public Use
  Company Number: US-ROXANE LABORATORIES, INC.-2012-RO-01318RO

PATIENT
  Age: 50 Year
  Sex: Female

DRUGS (1)
  1. BUTORPHANOL TARTRATE [Suspect]
     Indication: MIGRAINE
     Route: 045
     Dates: start: 20110201

REACTIONS (1)
  - DRUG INEFFECTIVE [None]
